FAERS Safety Report 24227641 (Version 2)
Quarter: 2024Q3

REPORT INFORMATION
  Report Type: Spontaneous
  Country: CH (occurrence: CH)
  Receive Date: 20240820
  Receipt Date: 20240919
  Transmission Date: 20241016
  Serious: Yes (Other)
  Sender: ADC THERAPEUTICS
  Company Number: CH-BIOVITRUM-2024-CH-010763

PATIENT
  Sex: Male

DRUGS (4)
  1. ZYNLONTA [Suspect]
     Active Substance: LONCASTUXIMAB TESIRINE-LPYL
     Indication: Diffuse large B-cell lymphoma
     Dosage: 150 MICROGRAM/KILOGRAM FOR THE FIRST 2 CYCLESCYCLE 1
     Dates: start: 20240426, end: 20240426
  2. ZYNLONTA [Suspect]
     Active Substance: LONCASTUXIMAB TESIRINE-LPYL
     Dosage: 150 MICROGRAM/KILOGRAM FOR THE FIRST 2 CYCLESCYCLE 2
     Dates: start: 20240507, end: 20240507
  3. ZYNLONTA [Suspect]
     Active Substance: LONCASTUXIMAB TESIRINE-LPYL
     Dosage: 75 MICROGRAM/KILOGRAM FOR THE 3RD AND 4TH CYCLESCYCLE 3
     Dates: start: 20240607, end: 20240607
  4. ZYNLONTA [Suspect]
     Active Substance: LONCASTUXIMAB TESIRINE-LPYL
     Dosage: 75 MICROGRAM/KILOGRAM FOR THE 3RD AND 4TH CYCLESCYCLE 4
     Dates: start: 20240627, end: 20240627

REACTIONS (3)
  - Capillary leak syndrome [Unknown]
  - Therapy partial responder [Unknown]
  - Photosensitivity reaction [Recovered/Resolved]
